FAERS Safety Report 8565638-9 (Version None)
Quarter: 2012Q3

REPORT INFORMATION
  Report Type: 
  Country: None (occurrence: None)
  Receive Date: 20120803
  Receipt Date: 20120725
  Transmission Date: 20120928
  Serious: Yes (Hospitalization)
  Sender: FDA-Public Use
  Company Number: BR-ELI_LILLY_AND_COMPANY-BR201202003425

PATIENT
  Sex: Female
  Weight: 57.8 kg

DRUGS (7)
  1. GEMZAR [Suspect]
     Indication: PANCREATIC CARCINOMA
     Dosage: 1470 MG, OTHER
     Route: 042
  2. TRAMADOL HCL [Concomitant]
     Route: 065
  3. DIPYRONE TAB [Concomitant]
     Dosage: UNK, UNKNOWN
     Route: 065
  4. METFORMIN HCL [Concomitant]
     Dosage: UNK, UNKNOWN
     Route: 065
  5. GLYBURIDE [Concomitant]
     Dosage: UNK, UNKNOWN
     Route: 065
  6. GEMZAR [Suspect]
     Dosage: 1580 MG, CYCLE
     Route: 042
  7. ACETYLSALICYLIC ACID SRT [Concomitant]
     Dosage: UNK, UNKNOWN
     Route: 065

REACTIONS (3)
  - BLOOD PRESSURE INCREASED [None]
  - PYREXIA [None]
  - TREMOR [None]
